FAERS Safety Report 5904085-2 (Version None)
Quarter: 2008Q3

REPORT INFORMATION
  Report Type: 
  Country: None (occurrence: None)
  Receive Date: 20080930
  Receipt Date: 20080923
  Transmission Date: 20090109
  Serious: Yes (Other)
  Sender: FDA-Public Use
  Company Number: US-JNJCH-2008024910

PATIENT
  Age: 53 Year
  Sex: Female
  Weight: 58.1 kg

DRUGS (3)
  1. LISTERINE WHITENING QUICK DISSOLVING STRIPS [Suspect]
     Indication: DENTAL CARE
     Dosage: TEXT:AS DIRECTED 2 TIMES A DAY
     Route: 048
     Dates: start: 20080901, end: 20080920
  2. LISTERINE WHITENING PRE-BRUSH RINSE [Suspect]
     Indication: DENTAL CARE
     Dosage: TEXT:AS DIRECTED ONCE DAILY
     Route: 048
     Dates: start: 20080901, end: 20080920
  3. DRUG, UNSPECIFIED [Concomitant]
     Indication: DRUG USE FOR UNKNOWN INDICATION
     Dosage: TEXT:UNSPECIFIED
     Route: 065

REACTIONS (2)
  - AGEUSIA [None]
  - HYPOAESTHESIA ORAL [None]
